FAERS Safety Report 15704613 (Version 5)
Quarter: 2019Q2

REPORT INFORMATION
  Report Type: Spontaneous
  Country: US (occurrence: US)
  Receive Date: 20181210
  Receipt Date: 20190611
  Transmission Date: 20190711
  Serious: Yes (Hospitalization, Other)
  Sender: FDA-Public Use
  Company Number: US-PFIZER INC-2018503520

PATIENT
  Age: 72 Year
  Sex: Female

DRUGS (16)
  1. ALPHAGAN P [Concomitant]
     Active Substance: BRIMONIDINE TARTRATE
     Indication: GLAUCOMA
     Dosage: 2 GTT, 1X/DAY (1 DROP IN EACH EYE EVERY NIGHT)
     Route: 047
     Dates: start: 200501
  2. ALPHAGAN P [Concomitant]
     Active Substance: BRIMONIDINE TARTRATE
     Dosage: UNK
     Dates: start: 1998
  3. ZIOPTAN [Concomitant]
     Active Substance: TAFLUPROST
     Dosage: UNK
     Dates: start: 2011
  4. TYLENOL [Concomitant]
     Active Substance: ACETAMINOPHEN
     Dosage: UNK, AS NEEDED
  5. VERAPAMIL HCL [Suspect]
     Active Substance: VERAPAMIL HYDROCHLORIDE
     Indication: STENT PLACEMENT
     Dosage: 40 MG, 2X/DAY
     Dates: start: 201803
  6. ALPHAGAN P [Concomitant]
     Active Substance: BRIMONIDINE TARTRATE
     Dosage: UNK
     Dates: start: 2000
  7. ASPIRIN [ACETYLSALICYLIC ACID] [Concomitant]
     Active Substance: ASPIRIN
     Dosage: UNK
     Dates: start: 1999
  8. VERAPAMIL HCL [Suspect]
     Active Substance: VERAPAMIL HYDROCHLORIDE
     Indication: MYOCARDIAL INFARCTION
     Dosage: 40 MG, 2X/DAY [MORNING 1 TABLET: EVENING 1 TABLET]
     Route: 048
     Dates: start: 201804, end: 201811
  9. VERAPAMIL HCL [Suspect]
     Active Substance: VERAPAMIL HYDROCHLORIDE
     Indication: HYPERTENSION
     Dosage: 40 MG, 2X/DAY
     Dates: start: 201802
  10. ZIOPTAN [Concomitant]
     Active Substance: TAFLUPROST
     Indication: GLAUCOMA
     Dosage: 2 GTT, 1X/DAY (1 DROP IN EACH EYE AT NIGHT)
     Route: 047
     Dates: start: 200801
  11. ZIOPTAN [Concomitant]
     Active Substance: TAFLUPROST
     Dosage: UNK
     Dates: start: 2000
  12. PRASUGREL. [Concomitant]
     Active Substance: PRASUGREL
     Dosage: 10 MG, 1X/DAY
  13. VENTOLIN [Concomitant]
     Active Substance: ALBUTEROL SULFATE
     Dosage: UNK, AS NEEDED
     Dates: end: 2018
  14. VENTOLIN [Concomitant]
     Active Substance: ALBUTEROL SULFATE
     Dosage: UNK
     Dates: start: 1990
  15. ASPIRIN [ACETYLSALICYLIC ACID] [Concomitant]
     Active Substance: ASPIRIN
     Dosage: UNK, 1X/DAY
     Dates: start: 1998
  16. PRASUGREL. [Concomitant]
     Active Substance: PRASUGREL
     Dosage: UNK
     Dates: start: 201801

REACTIONS (14)
  - Vision blurred [Recovered/Resolved]
  - Lethargy [Recovered/Resolved]
  - Hypersensitivity [Unknown]
  - Condition aggravated [Not Recovered/Not Resolved]
  - Visual impairment [Not Recovered/Not Resolved]
  - Constipation [Recovered/Resolved]
  - Weight increased [Recovered/Resolved]
  - Diplopia [Not Recovered/Not Resolved]
  - Gait disturbance [Not Recovered/Not Resolved]
  - Headache [Recovered/Resolved]
  - Skin irritation [Recovered/Resolved]
  - Peripheral swelling [Recovered/Resolved]
  - Mouth swelling [Recovered/Resolved]
  - Back pain [Not Recovered/Not Resolved]

NARRATIVE: CASE EVENT DATE: 201804
